FAERS Safety Report 24006888 (Version 1)
Quarter: 2024Q2

REPORT INFORMATION
  Report Type: Spontaneous
  Country: US (occurrence: US)
  Receive Date: 20240624
  Receipt Date: 20240624
  Transmission Date: 20240716
  Serious: No
  Sender: FDA-Public Use
  Company Number: US-JNJFOC-20240577452

PATIENT
  Sex: Female

DRUGS (4)
  1. IMODIUM [Interacting]
     Active Substance: LOPERAMIDE HYDROCHLORIDE
     Indication: Product used for unknown indication
     Route: 065
  2. OMEPRAZOLE [Concomitant]
     Active Substance: DONEPEZIL HYDROCHLORIDE\OMEPRAZOLE\OMEPRAZOLE MAGNESIUM
     Indication: Product used for unknown indication
     Dosage: DAILY
     Route: 065
  3. TUKYSA [Concomitant]
     Active Substance: TUCATINIB
     Indication: Product used for unknown indication
     Dosage: MORNING AND NIGHT
     Route: 065
     Dates: start: 20240515
  4. TUKYSA [Concomitant]
     Active Substance: TUCATINIB
     Route: 065

REACTIONS (6)
  - Drug interaction [Unknown]
  - Rash [Unknown]
  - Burning sensation [Unknown]
  - Blister [Unknown]
  - Incorrect dose administered [Unknown]
  - Adverse event [Unknown]
